FAERS Safety Report 8551959 (Version 2)
Quarter: 2012Q4

REPORT INFORMATION
  Report Type: 
  Country: US (occurrence: US)
  Receive Date: 20120508
  Receipt Date: 20120831
  Transmission Date: 20130627
  Serious: Yes (Hospitalization, Other)
  Sender: FDA-Public Use
  Company Number: US-BAYER-2012-043472

PATIENT
  Age: 16 Year
  Sex: Female
  Weight: 32.2 kg

DRUGS (6)
  1. YAZ [Suspect]
     Indication: MENSTRUAL DISORDER
     Dosage: UNK
     Dates: start: 20071209, end: 200811
  2. IBUPROFEN [Concomitant]
     Indication: PAIN
     Dosage: Monthly, PRN
     Dates: start: 2007
  3. NEXIUM [Concomitant]
     Indication: ULCER
     Dosage: 10 mg, per day
  4. KAPIDEX [Concomitant]
  5. VITAMINS [Concomitant]
  6. DEPO-PROVERA [Concomitant]
     Dosage: UNK
     Dates: start: 201001, end: 201105

REACTIONS (7)
  - Cholecystitis [None]
  - Cholecystitis chronic [None]
  - Appendicectomy [None]
  - Post cholecystectomy syndrome [None]
  - Pain [None]
  - Injury [None]
  - Emotional distress [None]
